FAERS Safety Report 9021764 (Version 2)
Quarter: 2014Q1

REPORT INFORMATION
  Report Type: Spontaneous
  Country: US (occurrence: US)
  Receive Date: 20130119
  Receipt Date: 20140205
  Transmission Date: 20141002
  Serious: No
  Sender: FDA-Public Use
  Company Number: US-ALLERGAN-1207557US

PATIENT
  Age: 82 Year
  Sex: Female

DRUGS (4)
  1. BOTOX COSMETIC [Suspect]
     Indication: SKIN WRINKLING
     Dosage: UNK
     Route: 030
     Dates: start: 2011, end: 2011
  2. BOTOX COSMETIC [Suspect]
     Indication: SKIN WRINKLING
     Dosage: UNK, SINGLE
     Dates: start: 20130411, end: 20130411
  3. LOSARTAN [Concomitant]
     Indication: HYPERTENSION
     Dosage: 50 MG, QD
     Route: 048
     Dates: start: 2010
  4. CORTISONE [Concomitant]
     Indication: OSTEOARTHRITIS
     Dosage: UNK

REACTIONS (6)
  - Visual impairment [Unknown]
  - Eyelid ptosis [Recovered/Resolved]
  - Injection site rash [Not Recovered/Not Resolved]
  - Skin wrinkling [Not Recovered/Not Resolved]
  - Depressed mood [Unknown]
  - Brow ptosis [Unknown]
